FAERS Safety Report 5821629-X (Version None)
Quarter: 2008Q3

REPORT INFORMATION
  Report Type: 
  Country: None (occurrence: None)
  Receive Date: 20080714
  Receipt Date: 20070815
  Transmission Date: 20090109
  Serious: Yes (Hospitalization)
  Sender: FDA-Public Use
  Company Number: 511729

PATIENT
  Age: 89 Year
  Sex: Female

DRUGS (10)
  1. BONIVA [Suspect]
     Indication: OSTEOPOROSIS
     Dosage: 150 MG ORAL
     Route: 048
     Dates: start: 20070421, end: 20070522
  2. COREG [Suspect]
     Indication: CARDIAC FAILURE CONGESTIVE
     Dosage: 6.25 MG 2 PER DAY ORAL
     Route: 048
     Dates: start: 20050101
  3. FURSEMIDE (FUROSEMIDE) [Concomitant]
  4. PLAVIX [Concomitant]
  5. SYNTHROID [Concomitant]
  6. DIOVAN [Concomitant]
  7. PREVACID [Concomitant]
  8. OSCAL (CALCIUM CARBONATE) [Concomitant]
  9. CENTRUM (MINERALS NOS/MULTIVITAMIN NOS) [Concomitant]
  10. IRON (IRON NOS) [Concomitant]

REACTIONS (3)
  - DYSPHAGIA [None]
  - HEADACHE [None]
  - NAUSEA [None]
